FAERS Safety Report 11957688 (Version 2)
Quarter: 2016Q1

REPORT INFORMATION
  Report Type: Spontaneous
  Country: ES (occurrence: ES)
  Receive Date: 20160126
  Receipt Date: 20160211
  Transmission Date: 20160526
  Serious: Yes (Death, Other)
  Sender: FDA-Public Use
  Company Number: ES-TAKEDA-2016TUS001250

PATIENT
  Age: 39 Year
  Sex: Male
  Weight: 75 kg

DRUGS (10)
  1. NATALIZUMAB [Concomitant]
     Active Substance: NATALIZUMAB
     Indication: CROHN^S DISEASE
     Dosage: 300 MG, UNK
     Route: 042
     Dates: start: 20120918, end: 20130108
  2. USTEKINUMAB [Concomitant]
     Active Substance: USTEKINUMAB
     Indication: CROHN^S DISEASE
     Dosage: 90 MG, UNK
     Route: 058
     Dates: start: 20150605, end: 20150930
  3. INFLIXIMAB [Concomitant]
     Active Substance: INFLIXIMAB
     Indication: CROHN^S DISEASE
     Dosage: 5 MG/KG, UNK
     Route: 042
     Dates: start: 20050623, end: 20050815
  4. ADALIMUMAB [Concomitant]
     Active Substance: ADALIMUMAB
     Indication: CROHN^S DISEASE
     Dosage: 40 MG, UNK
     Route: 058
     Dates: start: 20111209, end: 20120315
  5. ADALIMUMAB [Concomitant]
     Active Substance: ADALIMUMAB
     Dosage: 40 UNK, UNK
     Route: 058
     Dates: start: 20150121, end: 20150504
  6. ENTYVIO [Suspect]
     Active Substance: VEDOLIZUMAB
     Indication: CROHN^S DISEASE
     Dosage: 300 MG, UNK
     Route: 042
     Dates: start: 20151007, end: 20151111
  7. ENTYVIO [Suspect]
     Active Substance: VEDOLIZUMAB
     Indication: ADENOCARCINOMA OF COLON
  8. PREDNISONE. [Concomitant]
     Active Substance: PREDNISONE
     Indication: CROHN^S DISEASE
     Dosage: UNK
     Dates: start: 20150302, end: 20151229
  9. INFLIXIMAB [Concomitant]
     Active Substance: INFLIXIMAB
     Dosage: 5 UNK, UNK
     Route: 042
     Dates: start: 20060328, end: 20111014
  10. URSOBILANE [Concomitant]
     Indication: CHOLANGITIS SCLEROSING
     Dosage: UNK
     Route: 048

REACTIONS (1)
  - Adenocarcinoma of colon [Fatal]
